FAERS Safety Report 6207860-2 (Version None)
Quarter: 2009Q2

REPORT INFORMATION
  Report Type: 
  Country: None (occurrence: None)
  Receive Date: 20090522
  Receipt Date: 20090511
  Transmission Date: 20091009
  Serious: Yes (Other)
  Sender: FDA-Public Use
  Company Number: 2009S1008216

PATIENT
  Age: 53 Year
  Sex: Female

DRUGS (3)
  1. ANAGRELIDE HCL [Suspect]
     Indication: ESSENTIAL THROMBOCYTHAEMIA
  2. HYDROXYUREA [Suspect]
     Indication: ESSENTIAL THROMBOCYTHAEMIA
  3. HYDROXYCARBAMIDE [Concomitant]

REACTIONS (1)
  - ERYTHROMELALGIA [None]
